FAERS Safety Report 8270296-7 (Version None)
Quarter: 2012Q2

REPORT INFORMATION
  Report Type: 
  Country: None (occurrence: None)
  Receive Date: 20120410
  Receipt Date: 20120402
  Transmission Date: 20120825
  Serious: Yes (Life-Threatening, Hospitalization)
  Sender: FDA-Public Use
  Company Number: FR-SANOFI-AVENTIS-2011SA083621

PATIENT
  Age: 46 Year
  Sex: Male

DRUGS (9)
  1. ISONIAZID [Suspect]
     Route: 048
  2. OMEPRAZOLE [Concomitant]
     Dates: start: 20040401
  3. EPIVIR [Suspect]
     Route: 048
     Dates: start: 20030701
  4. MYAMBUTOL [Suspect]
     Route: 048
     Dates: start: 20030701
  5. RIFADIN [Suspect]
     Route: 048
     Dates: start: 20030701
  6. ACETAMINOPHEN [Concomitant]
     Dates: start: 20040401
  7. ISONIAZID [Suspect]
     Route: 048
     Dates: start: 20030701
  8. ZERIT [Suspect]
     Route: 048
     Dates: start: 20030701
  9. BACTRIM [Concomitant]
     Dates: start: 20030401

REACTIONS (2)
  - HEPATITIS FULMINANT [None]
  - LIVER TRANSPLANT [None]
